FAERS Safety Report 7590980-8 (Version None)
Quarter: 2011Q3

REPORT INFORMATION
  Report Type: 
  Country: None (occurrence: None)
  Receive Date: 20110705
  Receipt Date: 20110701
  Transmission Date: 20111222
  Serious: Yes (Life-Threatening)
  Sender: FDA-Public Use
  Company Number: PHHY2011FR58445

PATIENT
  Sex: Female

DRUGS (7)
  1. RABEPRAZOLE SODIUM [Concomitant]
     Dosage: UNK UKN, UNK
  2. EXELON [Suspect]
     Dosage: 4.6 MG/24HR, QD
     Route: 062
     Dates: start: 20110304, end: 20110525
  3. ASPIRIN [Concomitant]
     Dosage: UNK UKN, UNK
  4. XYZAL [Suspect]
     Dosage: 1 DF, QD
     Route: 048
     Dates: start: 20110303, end: 20110525
  5. RISPERDAL [Suspect]
     Indication: AGITATION
     Dosage: 0.5 ML, QD
     Route: 048
     Dates: start: 20110509, end: 20110525
  6. IXEL [Concomitant]
     Dosage: UNK UKN, UNK
  7. ACETAMINOPHEN [Concomitant]
     Dosage: UNK UKN, UNK

REACTIONS (3)
  - DYSPHAGIA [None]
  - DIVERTICULUM GASTRIC [None]
  - SOMNOLENCE [None]
